FAERS Safety Report 9486125 (Version 1)
Quarter: 2013Q3

REPORT INFORMATION
  Report Type: Spontaneous
  Country: US (occurrence: None)
  Receive Date: 20130827
  Receipt Date: 20130827
  Transmission Date: 20140515
  Serious: No
  Sender: FDA-Public Use
  Company Number: None

PATIENT
  Age: 63 Year
  Sex: Male
  Weight: 72.58 kg

DRUGS (2)
  1. NC2 (MCR) LM) [Suspect]
     Indication: NECK PAIN
     Dosage: 1 DAB PER APPLI
     Route: 061
     Dates: start: 20130619, end: 20130708
  2. NC2 (MCR) LM) [Suspect]
     Indication: HEADACHE
     Dosage: 1 DAB PER APPLI
     Route: 061
     Dates: start: 20130619, end: 20130708

REACTIONS (4)
  - Erythema [None]
  - Dry skin [None]
  - Drug ineffective [None]
  - Product quality issue [None]
